FAERS Safety Report 10152725 (Version 1)
Quarter: 2014Q2

REPORT INFORMATION
  Report Type: Spontaneous
  Country: US (occurrence: US)
  Receive Date: 20140505
  Receipt Date: 20140505
  Transmission Date: 20141212
  Serious: No
  Sender: FDA-Public Use
  Company Number: US-JNJFOC-20140416421

PATIENT
  Sex: Female
  Weight: 106.6 kg

DRUGS (3)
  1. DURAGESIC [Suspect]
     Indication: PAIN
     Route: 062
     Dates: start: 2014
  2. DURAGESIC [Suspect]
     Indication: PAIN
     Route: 062
  3. DURAGESIC [Suspect]
     Indication: PAIN
     Route: 062
     Dates: start: 2013

REACTIONS (3)
  - Inadequate analgesia [Recovered/Resolved]
  - Poor quality drug administered [Recovered/Resolved]
  - Product quality issue [Recovered/Resolved]
